FAERS Safety Report 11729720 (Version 1)
Quarter: 2015Q4

REPORT INFORMATION
  Report Type: Spontaneous
  Country: US (occurrence: US)
  Receive Date: 20151110
  Receipt Date: 20151110
  Transmission Date: 20160304
  Serious: No
  Sender: FDA-Public Use
  Company Number: US-ELI_LILLY_AND_COMPANY-US201201002313

PATIENT
  Sex: Female

DRUGS (2)
  1. FORTEO [Suspect]
     Active Substance: TERIPARATIDE
     Dosage: 20 UG, QD
     Route: 065
     Dates: start: 20120102
  2. FORTEO [Suspect]
     Active Substance: TERIPARATIDE
     Indication: OSTEOPOROSIS
     Dosage: 20 UG, QD
     Route: 065
     Dates: start: 20110922, end: 20111013

REACTIONS (6)
  - Constipation [Recovering/Resolving]
  - Musculoskeletal discomfort [Recovering/Resolving]
  - Fatigue [Recovering/Resolving]
  - Musculoskeletal disorder [Recovering/Resolving]
  - Bone disorder [Unknown]
  - Intentional device misuse [Unknown]
